FAERS Safety Report 20550987 (Version 1)
Quarter: 2022Q1

REPORT INFORMATION
  Report Type: Spontaneous
  Country: CA (occurrence: CA)
  Receive Date: 20220304
  Receipt Date: 20220304
  Transmission Date: 20220423
  Serious: Yes (Hospitalization, Other)
  Sender: FDA-Public Use
  Company Number: CA-TEVA-2022-CA-2011982

PATIENT
  Age: 61 Year
  Sex: Female

DRUGS (1)
  1. METHOTREXATE [Suspect]
     Active Substance: METHOTREXATE
     Indication: Product used for unknown indication
     Route: 065

REACTIONS (13)
  - Dysphagia [Unknown]
  - Faeces discoloured [Unknown]
  - Gastrointestinal disorder [Unknown]
  - Gastrooesophageal reflux disease [Unknown]
  - Joint swelling [Unknown]
  - Musculoskeletal stiffness [Unknown]
  - Nodule [Unknown]
  - Oedema peripheral [Unknown]
  - Oesophageal dilatation [Unknown]
  - Pain [Unknown]
  - Peripheral swelling [Unknown]
  - Vomiting [Unknown]
  - Drug intolerance [Unknown]
